FAERS Safety Report 26080467 (Version 1)
Quarter: 2025Q4

REPORT INFORMATION
  Report Type: Spontaneous
  Country: GB (occurrence: GB)
  Receive Date: 20251124
  Receipt Date: 20251124
  Transmission Date: 20260117
  Serious: Yes (Hospitalization, Other)
  Sender: ROCHE
  Company Number: None

PATIENT
  Age: 81 Year
  Sex: Female
  Weight: 90 kg

DRUGS (11)
  1. OSELTAMIVIR [Suspect]
     Active Substance: OSELTAMIVIR
     Indication: Pneumonia
     Dosage: 75MG TWICE A DAY
     Route: 065
     Dates: start: 20251008, end: 20251010
  2. COTRIMOXAZOLE [Suspect]
     Active Substance: SULFAMETHOXAZOLE\TRIMETHOPRIM
     Indication: Pneumonia
     Dosage: 960MG TWICE A DAY
     Route: 065
     Dates: start: 20251008, end: 20251010
  3. LANSOPRAZOLE [Concomitant]
     Active Substance: LANSOPRAZOLE
     Route: 050
  4. NICORANDIL [Concomitant]
     Active Substance: NICORANDIL
  5. NITROGLYCERIN [Concomitant]
     Active Substance: NITROGLYCERIN
  6. RAMIPRIL [Concomitant]
     Active Substance: RAMIPRIL
  7. TRAVOPROST [Concomitant]
     Active Substance: TRAVOPROST
  8. APIXABAN [Concomitant]
     Active Substance: APIXABAN
  9. BECLOMETHASONE\FORMOTEROL [Concomitant]
     Active Substance: BECLOMETHASONE\FORMOTEROL
  10. DILTIAZEM [Concomitant]
     Active Substance: DILTIAZEM
  11. MINERAL OIL\PETROLATUM\WAX, EMULSIFYING [Concomitant]
     Active Substance: MINERAL OIL\PETROLATUM\WAX, EMULSIFYING

REACTIONS (6)
  - Coordination abnormal [Unknown]
  - Swelling face [Recovered/Resolved]
  - Peripheral swelling [Recovered/Resolved]
  - Vomiting [Recovered/Resolved]
  - Rash [Recovered/Resolved]
  - Lip swelling [Recovered/Resolved]

NARRATIVE: CASE EVENT DATE: 20251014
